FAERS Safety Report 7244288-0 (Version None)
Quarter: 2011Q1

REPORT INFORMATION
  Report Type: 
  Country: None (occurrence: None)
  Receive Date: 20110119
  Receipt Date: 20110119
  Transmission Date: 20110831
  Serious: No
  Sender: FDA-Public Use
  Company Number: None

PATIENT
  Age: 44 Year
  Sex: Male
  Weight: 79.8331 kg

DRUGS (5)
  1. LAMIVUDINE [Concomitant]
  2. WELLBUTRIN [Suspect]
     Indication: POST-TRAUMATIC STRESS DISORDER
     Dosage: PO
     Route: 048
     Dates: start: 20101201
  3. WELLBUTRIN [Suspect]
     Indication: DEPRESSION
     Dosage: PO
     Route: 048
     Dates: start: 20101201
  4. VIREAD [Concomitant]
  5. MIRAMUNE [Concomitant]

REACTIONS (4)
  - CONDITION AGGRAVATED [None]
  - ANXIETY [None]
  - PANIC ATTACK [None]
  - THERAPEUTIC RESPONSE UNEXPECTED WITH DRUG SUBSTITUTION [None]
